FAERS Safety Report 6107114-9 (Version None)
Quarter: 2009Q1

REPORT INFORMATION
  Report Type: 
  Country: None (occurrence: None)
  Receive Date: 20090309
  Receipt Date: 20090227
  Transmission Date: 20090719
  Serious: Yes (Death)
  Sender: FDA-Public Use
  Company Number: PHHY2008JP19061

PATIENT
  Sex: Female

DRUGS (10)
  1. EXJADE [Suspect]
     Indication: IRON OVERLOAD
     Dosage: 750 MG DAILY
     Route: 048
     Dates: start: 20080720
  2. EXJADE [Suspect]
     Dosage: 725 MG, QD
     Route: 048
     Dates: start: 20080717, end: 20080729
  3. PREDONINE [Concomitant]
     Indication: LYMPHOMA
     Dosage: 5 MG
  4. BAKTAR [Concomitant]
     Indication: INFECTION PROPHYLAXIS
     Dosage: 1 DF
     Dates: start: 20080720
  5. ISCOTIN [Concomitant]
     Indication: INFECTION PROPHYLAXIS
  6. GASTER [Concomitant]
     Dosage: 1 DF
     Route: 048
     Dates: start: 20080720
  7. DECADRON [Concomitant]
     Dosage: 40 MG
     Route: 042
     Dates: start: 20080723
  8. DECADRON [Concomitant]
     Dosage: 8 MG
     Route: 042
  9. DECADRON [Concomitant]
     Dosage: 4 MG
     Route: 042
  10. DECADRON [Concomitant]
     Dosage: 2 MG
     Route: 042

REACTIONS (5)
  - BLOOD BILIRUBIN INCREASED [None]
  - BLOOD LACTATE DEHYDROGENASE INCREASED [None]
  - BLOOD UREA INCREASED [None]
  - DEATH [None]
  - MALIGNANT NEOPLASM PROGRESSION [None]
